FAERS Safety Report 15325897 (Version 11)
Quarter: 2019Q3

REPORT INFORMATION
  Report Type: Spontaneous
  Country: US (occurrence: US)
  Receive Date: 20180828
  Receipt Date: 20190801
  Transmission Date: 20191004
  Serious: Yes (Hospitalization, Other)
  Sender: FDA-Public Use
  Company Number: US-PFIZER INC-2018344459

PATIENT
  Age: 53 Year
  Sex: Female
  Weight: 77 kg

DRUGS (6)
  1. LYRICA [Suspect]
     Active Substance: PREGABALIN
     Indication: RHEUMATOID ARTHRITIS
     Dosage: UNK (UPPED IT, TAKING MORE MEDICINE THAN THE BOTTLE ALLOWED)
     Dates: start: 2018, end: 2018
  2. LYRICA [Suspect]
     Active Substance: PREGABALIN
     Indication: FIBROMYALGIA
     Dosage: 50 MG (1 CAPSULE), 3X/DAY
     Route: 048
     Dates: start: 2018, end: 2018
  3. LYRICA [Suspect]
     Active Substance: PREGABALIN
     Dosage: UNK
  4. LYRICA [Suspect]
     Active Substance: PREGABALIN
     Indication: PAIN
     Dosage: 75 MG, 4X/DAY
     Route: 048
  5. LYRICA [Suspect]
     Active Substance: PREGABALIN
     Indication: ARTHRITIS
     Dosage: UNK
  6. LYRICA [Suspect]
     Active Substance: PREGABALIN
     Indication: OSTEOARTHRITIS
     Dosage: 50 MG, 4X/DAY
     Dates: start: 2018

REACTIONS (14)
  - Withdrawal syndrome [Not Recovered/Not Resolved]
  - Insomnia [Not Recovered/Not Resolved]
  - Intentional product use issue [Not Recovered/Not Resolved]
  - Arthralgia [Not Recovered/Not Resolved]
  - Dizziness [Unknown]
  - Tremor [Unknown]
  - Influenza like illness [Not Recovered/Not Resolved]
  - Pneumonia [Unknown]
  - Nausea [Unknown]
  - Malaise [Unknown]
  - Dyskinesia [Not Recovered/Not Resolved]
  - Nervousness [Not Recovered/Not Resolved]
  - Musculoskeletal pain [Not Recovered/Not Resolved]
  - Eye movement disorder [Not Recovered/Not Resolved]

NARRATIVE: CASE EVENT DATE: 2018
